FAERS Safety Report 9641639 (Version 1)
Quarter: 2013Q4

REPORT INFORMATION
  Report Type: Spontaneous
  Country: IT (occurrence: IT)
  Receive Date: 20131023
  Receipt Date: 20131023
  Transmission Date: 20140711
  Serious: Yes (Other)
  Sender: FDA-Public Use
  Company Number: IT-GLAXOSMITHKLINE-B0933863A

PATIENT
  Age: 83 Year
  Sex: Female

DRUGS (1)
  1. VOTRIENT [Suspect]
     Indication: CLEAR CELL RENAL CELL CARCINOMA
     Dosage: 400MG PER DAY
     Route: 048

REACTIONS (3)
  - Atrial fibrillation [Recovering/Resolving]
  - Angina pectoris [Recovering/Resolving]
  - Haemodynamic instability [Recovering/Resolving]
